FAERS Safety Report 23495817 (Version 1)
Quarter: 2024Q1

REPORT INFORMATION
  Report Type: Report from Study
  Country: US (occurrence: US)
  Receive Date: 20240207
  Receipt Date: 20240207
  Transmission Date: 20240410
  Serious: Yes (Other)
  Sender: FDA-Public Use
  Company Number: US-TAIHOP-2023-010583

PATIENT
  Age: 85 Year
  Sex: Male

DRUGS (1)
  1. LONSURF [Suspect]
     Active Substance: TIPIRACIL HYDROCHLORIDE\TRIFLURIDINE
     Indication: Product used for unknown indication
     Dosage: DOSE, FORM STRENGTH, FREQUENCY AND CURRENT CYCLE WERE UNKNOWN.
     Route: 048

REACTIONS (4)
  - Adult failure to thrive [Unknown]
  - Decreased appetite [Unknown]
  - Hypersomnia [Unknown]
  - Pleural effusion [Unknown]
